FAERS Safety Report 12467784 (Version 4)
Quarter: 2016Q3

REPORT INFORMATION
  Report Type: Spontaneous
  Country: US (occurrence: US)
  Receive Date: 20160615
  Receipt Date: 20160902
  Transmission Date: 20161109
  Serious: Yes (Death, Other)
  Sender: FDA-Public Use
  Company Number: US-CELGENEUS-USA-2016036625

PATIENT
  Age: 62 Year
  Sex: Male

DRUGS (1)
  1. VIDAZA [Suspect]
     Active Substance: AZACITIDINE
     Indication: ACUTE MYELOID LEUKAEMIA
     Dosage: 75 MILLIGRAM/SQ. METER
     Route: 041
     Dates: start: 20160208, end: 20160216

REACTIONS (4)
  - Subdural haemorrhage [Unknown]
  - Drug ineffective [Unknown]
  - Acute myeloid leukaemia [Fatal]
  - Fall [Unknown]

NARRATIVE: CASE EVENT DATE: 20160222
